FAERS Safety Report 23951210 (Version 3)
Quarter: 2024Q3

REPORT INFORMATION
  Report Type: Other
  Country: US (occurrence: US)
  Receive Date: 20240607
  Receipt Date: 20240702
  Transmission Date: 20241016
  Serious: Yes (Hospitalization)
  Sender: TRAVERE THERAPEUTICS
  Company Number: US-TRAVERE-2024TVT00570

PATIENT
  Age: 51 Year
  Sex: Male
  Weight: 204.1 kg

DRUGS (22)
  1. FILSPARI [Suspect]
     Active Substance: SPARSENTAN
     Indication: IgA nephropathy
     Route: 048
  2. FILSPARI [Suspect]
     Active Substance: SPARSENTAN
     Route: 048
     Dates: start: 20240526
  3. ZYLOPRIM [Concomitant]
     Active Substance: ALLOPURINOL
  4. CLONIDINE [Concomitant]
     Active Substance: CLONIDINE
  5. FERROUS SULFATE [Concomitant]
     Active Substance: FERROUS SULFATE
  6. GABAPENTIN [Concomitant]
     Active Substance: GABAPENTIN
  7. MICONAZOLE [Concomitant]
     Active Substance: MICONAZOLE
  8. NIFEDIPINE [Concomitant]
     Active Substance: NIFEDIPINE
  9. SPIRONOLACTONE [Concomitant]
     Active Substance: SPIRONOLACTONE
  10. Therapeutic multivitamin-minerals [Concomitant]
  11. TORSEMIDE [Concomitant]
     Active Substance: TORSEMIDE
  12. ELIQUIS [Concomitant]
     Active Substance: APIXABAN
  13. BUSPAR [Concomitant]
     Active Substance: BUSPIRONE HYDROCHLORIDE
  14. APRESOLINE HYDROCHLORIDE [Concomitant]
     Active Substance: HYDRALAZINE HYDROCHLORIDE
  15. ABILIFY [Concomitant]
     Active Substance: ARIPIPRAZOLE
  16. COREG [Concomitant]
     Active Substance: CARVEDILOL
  17. NORVASC [Concomitant]
     Active Substance: AMLODIPINE BESYLATE
  18. Micotin [Concomitant]
  19. COLACE [Concomitant]
     Active Substance: DOCUSATE SODIUM
  20. LISINOPRIL [Concomitant]
     Active Substance: LISINOPRIL
  21. POTASSIUM CHLORIDE [Concomitant]
     Active Substance: POTASSIUM CHLORIDE
  22. BUMEX [Concomitant]
     Active Substance: BUMETANIDE

REACTIONS (2)
  - Fall [Unknown]
  - Cellulitis [Unknown]
